FAERS Safety Report 7308331-2 (Version None)
Quarter: 2011Q1

REPORT INFORMATION
  Report Type: 
  Country: None (occurrence: None)
  Receive Date: 20110223
  Receipt Date: 20110214
  Transmission Date: 20110831
  Serious: Yes (Other)
  Sender: FDA-Public Use
  Company Number: B0691445A

PATIENT
  Sex: Female
  Weight: 82 kg

DRUGS (1)
  1. PAZOPANIB [Suspect]
     Indication: PRODUCT USED FOR UNKNOWN INDICATION

REACTIONS (4)
  - EJECTION FRACTION DECREASED [None]
  - CARDIAC FAILURE CONGESTIVE [None]
  - DIALYSIS [None]
  - PULMONARY OEDEMA [None]
